FAERS Safety Report 6391933-8 (Version None)
Quarter: 2009Q4

REPORT INFORMATION
  Report Type: 
  Country: None (occurrence: None)
  Receive Date: 20091007
  Receipt Date: 20091002
  Transmission Date: 20100525
  Serious: Yes (Other)
  Sender: FDA-Public Use
  Company Number: A0794683A

PATIENT
  Age: 26 Year
  Sex: Male
  Weight: 98.2 kg

DRUGS (2)
  1. LAMOTRIGINE [Suspect]
     Indication: EPILEPSY
     Dosage: 200MG TWICE PER DAY
     Route: 065
     Dates: start: 20080917, end: 20091001
  2. ANTI-EPILEPTIC MEDICATION [Concomitant]

REACTIONS (14)
  - APNOEA [None]
  - AURA [None]
  - BRAIN INJURY [None]
  - CONVULSION [None]
  - CYANOSIS [None]
  - FALL [None]
  - GRAND MAL CONVULSION [None]
  - HEAD INJURY [None]
  - HEADACHE [None]
  - IMPAIRED DRIVING ABILITY [None]
  - LOSS OF CONSCIOUSNESS [None]
  - POSTICTAL STATE [None]
  - RESPIRATORY ARREST [None]
  - TACHYCARDIA [None]
